FAERS Safety Report 20490198 (Version 1)
Quarter: 2022Q1

REPORT INFORMATION
  Report Type: Spontaneous
  Country: US (occurrence: US)
  Receive Date: 20220218
  Receipt Date: 20220218
  Transmission Date: 20220423
  Serious: No
  Sender: FDA-Public Use
  Company Number: US-PFIZER INC-202101650414

PATIENT
  Age: 58 Year
  Sex: Female

DRUGS (2)
  1. SOMAVERT [Suspect]
     Active Substance: PEGVISOMANT
     Indication: Acromegaly
     Dosage: 30 MG, 1X/DAY
     Route: 058
     Dates: start: 20211124
  2. SOMAVERT [Suspect]
     Active Substance: PEGVISOMANT
     Indication: Hypothalamo-pituitary disorder

REACTIONS (2)
  - Product dose omission issue [Unknown]
  - Memory impairment [Unknown]
